FAERS Safety Report 7014544-X (Version None)
Quarter: 2010Q3

REPORT INFORMATION
  Report Type: 
  Country: None (occurrence: None)
  Receive Date: 20100927
  Receipt Date: 20100914
  Transmission Date: 20110219
  Serious: Yes (Other)
  Sender: FDA-Public Use
  Company Number: US-ELI_LILLY_AND_COMPANY-US201008007549

PATIENT
  Sex: Female

DRUGS (6)
  1. EVISTA [Suspect]
     Indication: OSTEOPOROSIS
     Dosage: 60 MG, DAILY (1/D)
  2. FORTEO [Suspect]
     Indication: OSTEOPOROSIS
     Dosage: 20 UG, DAILY (1/D)
     Dates: start: 20091001
  3. TRIAMTERENE [Concomitant]
  4. SYNTHROID [Concomitant]
  5. ALPRAZOLAM [Concomitant]
     Dosage: UNK, AS NEEDED
  6. LOMOTIL [Concomitant]
     Dosage: UNK, AS NEEDED

REACTIONS (6)
  - BLADDER PROLAPSE [None]
  - DYSPEPSIA [None]
  - GALLBLADDER OPERATION [None]
  - HIATUS HERNIA [None]
  - IRRITABLE BOWEL SYNDROME [None]
  - UTEROVAGINAL PROLAPSE [None]
